FAERS Safety Report 16541981 (Version 1)
Quarter: 2019Q3

REPORT INFORMATION
  Report Type: Spontaneous
  Country: US (occurrence: US)
  Receive Date: 20190708
  Receipt Date: 20190708
  Transmission Date: 20191004
  Serious: No
  Sender: FDA-Public Use
  Company Number: US-BAUSCH-BL-2019-018262

PATIENT
  Sex: Female

DRUGS (1)
  1. ARESTIN [Suspect]
     Active Substance: MINOCYCLINE HYDROCHLORIDE
     Indication: DENTAL CARE
     Route: 004
     Dates: start: 20190604, end: 20190604

REACTIONS (2)
  - Hyperaesthesia teeth [Unknown]
  - Toothache [Unknown]

NARRATIVE: CASE EVENT DATE: 20190614
